FAERS Safety Report 25134371 (Version 1)
Quarter: 2025Q1

REPORT INFORMATION
  Report Type: Spontaneous
  Country: ES (occurrence: ES)
  Receive Date: 20250328
  Receipt Date: 20250328
  Transmission Date: 20250409
  Serious: Yes (Other)
  Sender: MYLAN
  Company Number: ES-MYLANLABS-2025M1025612

PATIENT
  Age: 62 Year
  Sex: Male

DRUGS (20)
  1. ACETAMINOPHEN [Suspect]
     Active Substance: ACETAMINOPHEN
     Indication: Abdominal pain
  2. METAMIZOLE [Suspect]
     Active Substance: METAMIZOLE
     Indication: Abdominal pain
  3. SUNITINIB [Suspect]
     Active Substance: SUNITINIB
     Indication: Renal cancer
  4. FENTANYL [Suspect]
     Active Substance: FENTANYL
     Indication: Breakthrough pain
  5. FENTANYL [Suspect]
     Active Substance: FENTANYL
     Indication: Pain
  6. FENTANYL [Suspect]
     Active Substance: FENTANYL
     Indication: Breakthrough pain
  7. MORPHINE [Suspect]
     Active Substance: MORPHINE
     Indication: Cancer pain
  8. MORPHINE [Suspect]
     Active Substance: MORPHINE
     Indication: Breakthrough pain
     Dosage: 560 MILLIGRAM, QD (DELAYED RELEASE)
  9. MORPHINE [Suspect]
     Active Substance: MORPHINE
     Indication: Breakthrough pain
  10. MORPHINE [Concomitant]
     Active Substance: MORPHINE
     Indication: Pain
     Dosage: 432 MILLIGRAM, BID
  11. MORPHINE [Concomitant]
     Active Substance: MORPHINE
     Indication: Breakthrough pain
  12. MORPHINE [Concomitant]
     Active Substance: MORPHINE
     Indication: Pain
     Dosage: 0.5 MILLIGRAM, QD
     Dates: start: 20230118
  13. MORPHINE [Concomitant]
     Active Substance: MORPHINE
     Indication: Cancer pain
  14. METHADONE [Concomitant]
     Active Substance: METHADONE HYDROCHLORIDE
     Indication: Pain
     Dosage: 5 MILLIGRAM, QD
  15. METHADONE [Concomitant]
     Active Substance: METHADONE HYDROCHLORIDE
     Indication: Breakthrough pain
  16. NIVOLUMAB [Concomitant]
     Active Substance: NIVOLUMAB
     Indication: Renal cancer
  17. ZICONOTIDE [Concomitant]
     Active Substance: ZICONOTIDE
     Indication: Cancer pain
     Dosage: 0.7 MICROGRAM, QD
     Dates: start: 20230118
  18. ZICONOTIDE [Concomitant]
     Active Substance: ZICONOTIDE
  19. BUPIVACAINE [Concomitant]
     Active Substance: BUPIVACAINE
     Indication: Cancer pain
     Dosage: 2 MILLIGRAM, QD
     Dates: start: 20230118
  20. BUPIVACAINE [Concomitant]
     Active Substance: BUPIVACAINE

REACTIONS (2)
  - Drug ineffective [Unknown]
  - Constipation [Recovered/Resolved]
